FAERS Safety Report 9128512 (Version 5)
Quarter: 2014Q1

REPORT INFORMATION
  Report Type: Spontaneous
  Country: FR (occurrence: FR)
  Receive Date: 20130228
  Receipt Date: 20140312
  Transmission Date: 20141002
  Serious: Yes (Other)
  Sender: FDA-Public Use
  Company Number: FR-ROCHE-1196151

PATIENT
  Age: 42 Year
  Sex: Female
  Weight: 55 kg

DRUGS (11)
  1. ROACTEMRA [Suspect]
     Indication: TAKAYASU^S ARTERITIS
     Route: 042
     Dates: start: 20120426
  2. ROACTEMRA [Suspect]
     Route: 042
     Dates: start: 20131112
  3. CORTANCYL [Concomitant]
     Route: 065
  4. METHOTREXATE [Concomitant]
  5. SPECIAFOLDINE [Concomitant]
  6. DETENSIEL [Concomitant]
  7. COAPROVEL [Concomitant]
  8. AMLOR [Concomitant]
  9. KARDEGIC [Concomitant]
  10. OROCAL [Concomitant]
  11. ACTONEL [Concomitant]

REACTIONS (3)
  - Suicidal ideation [Unknown]
  - Aortic valve incompetence [Unknown]
  - Hallucination, visual [Unknown]
